FAERS Safety Report 25613764 (Version 1)
Quarter: 2025Q3

REPORT INFORMATION
  Report Type: Spontaneous
  Country: RU (occurrence: RU)
  Receive Date: 20250728
  Receipt Date: 20250728
  Transmission Date: 20251021
  Serious: Yes (Other)
  Sender: TAKEDA
  Company Number: RU-TAKEDA-2025TUS066338

PATIENT
  Age: 28 Year
  Sex: Male

DRUGS (3)
  1. PONATINIB [Suspect]
     Active Substance: PONATINIB
     Indication: Acute lymphocytic leukaemia
     Dosage: 45 MILLIGRAM, QD
     Dates: start: 2017
  2. ASCIMINIB [Suspect]
     Active Substance: ASCIMINIB
     Indication: Acute lymphocytic leukaemia
     Dosage: 400 MILLIGRAM, QD
  3. BLINATUMOMAB [Suspect]
     Active Substance: BLINATUMOMAB
     Indication: Acute lymphocytic leukaemia
     Dosage: 28 MILLIGRAM, QD

REACTIONS (4)
  - Acute lymphocytic leukaemia recurrent [Unknown]
  - Acute lymphocytic leukaemia [Unknown]
  - Gastrointestinal haemorrhage [Unknown]
  - Drug ineffective [Unknown]

NARRATIVE: CASE EVENT DATE: 20220501
